FAERS Safety Report 10466636 (Version 7)
Quarter: 2014Q4

REPORT INFORMATION
  Report Type: Spontaneous
  Country: JP (occurrence: None)
  Receive Date: 20140918
  Receipt Date: 20141218
  Transmission Date: 20150528
  Serious: Yes (Hospitalization, Other)
  Sender: FDA-Public Use
  Company Number: ADR-2014-01677

PATIENT
  Age: 71 Year
  Sex: Male
  Weight: 50 kg

DRUGS (7)
  1. NEORAL [Suspect]
     Active Substance: CYCLOSPORINE
     Dosage: TUBAL, 100MG/DAY
  2. PAZUCROSS [Suspect]
     Active Substance: PAZUFLOXACIN MESILATE
     Dosage: 500MG LIQUID IV DRIP DAILY DOSE OF 500MG
     Route: 041
     Dates: start: 20140919, end: 20140929
  3. MEROPENEM. [Suspect]
     Active Substance: MEROPENEM
     Dosage: 0.5G(POWDER) VIA AN IV DRIP, DAILY DOSE OF 1G
     Route: 041
     Dates: start: 20140908, end: 20140918
  4. FUNGUARD [Suspect]
     Active Substance: MICAFUNGIN SODIUM
     Dosage: DAILY DOSE OF 150 MG
     Route: 041
     Dates: start: 20140924, end: 20140930
  5. GABALON INTRATHECAL [Suspect]
     Active Substance: BACLOFEN
     Indication: CEREBELLAR INFARCTION
     Dates: start: 20140903, end: 20140910
  6. VANCOMYCIN [Suspect]
     Active Substance: VANCOMYCIN
     Dosage: 0.5G POWDER VIA AN IV DRIP, DAILY DOSE OF 0.4G
     Route: 041
     Dates: start: 20140908, end: 20140918
  7. RIFAMPICIN [Suspect]
     Active Substance: RIFAMPIN
     Dosage: 150MG CAPSULE, ROUTE OF ADMINISTRATION: TUBAL, DAIL DOSE OF 150MG
     Dates: start: 20140908, end: 20140918

REACTIONS (33)
  - Postoperative wound infection [None]
  - Meningitis aseptic [None]
  - Blood creatine phosphokinase decreased [None]
  - Infusion site haematoma [None]
  - Unevaluable event [None]
  - Alanine aminotransferase increased [None]
  - Platelet count increased [None]
  - Blood albumin decreased [None]
  - Haemoglobin decreased [None]
  - Musculoskeletal stiffness [None]
  - Inflammation [None]
  - Blood sodium decreased [None]
  - Red blood cell count decreased [None]
  - Blood bilirubin decreased [None]
  - Blood creatinine increased [None]
  - Psoriasis [None]
  - Blood glucose increased [None]
  - Gamma-glutamyltransferase increased [None]
  - Blood sodium increased [None]
  - Blood creatine phosphokinase increased [None]
  - Platelet count decreased [None]
  - CSF test abnormal [None]
  - Implant site haematoma [None]
  - C-reactive protein increased [None]
  - Blood urea increased [None]
  - Blood chloride increased [None]
  - Meningitis [None]
  - Pyrexia [None]
  - Haematocrit decreased [None]
  - Blood chloride decreased [None]
  - Blood potassium increased [None]
  - Protein total decreased [None]
  - Autoimmune disorder [None]

NARRATIVE: CASE EVENT DATE: 20140907
